FAERS Safety Report 9026959 (Version 1)
Quarter: 2013Q1

REPORT INFORMATION
  Report Type: Spontaneous
  Country: US (occurrence: US)
  Receive Date: 20130123
  Receipt Date: 20130123
  Transmission Date: 20140127
  Serious: Yes (Hospitalization)
  Sender: FDA-Public Use
  Company Number: US-BAYER-2013-008254

PATIENT
  Age: 32 Year
  Sex: Female
  Weight: 59.86 kg

DRUGS (7)
  1. BEYAZ [Suspect]
  2. YAZ [Suspect]
  3. B12-VITAMIIN [Concomitant]
     Dosage: UNK, DAILY
  4. BIOTIN [Concomitant]
     Dosage: UNK, DAILY
  5. PRENATAL VITAMINS [Concomitant]
     Dosage: UNK, DAILY
  6. AUGMENTIN [Concomitant]
     Dosage: 500-125MG
  7. PHENERGAN WITH CODEINE [Concomitant]

REACTIONS (1)
  - Deep vein thrombosis [None]
